FAERS Safety Report 8962824 (Version 1)
Quarter: 2012Q4

REPORT INFORMATION
  Report Type: 
  Country: BE (occurrence: BE)
  Receive Date: 20121213
  Receipt Date: 20121213
  Transmission Date: 20130627
  Serious: Yes (Hospitalization)
  Sender: FDA-Public Use
  Company Number: BE-ROXANE LABORATORIES, INC.-2012-RO-02561RO

PATIENT
  Age: 43 Year
  Sex: Male

DRUGS (3)
  1. OXCARBAZEPINE [Suspect]
     Indication: EPILEPSY
  2. TOPIRAMATE [Suspect]
     Indication: EPILEPSY
  3. VALPROIC ACID [Suspect]
     Indication: EPILEPSY

REACTIONS (2)
  - Hypothermia [Recovered/Resolved]
  - Apathy [Unknown]
